FAERS Safety Report 8841193 (Version 2)
Quarter: 2012Q4

REPORT INFORMATION
  Report Type: 
  Country: SE (occurrence: SE)
  Receive Date: 20121015
  Receipt Date: 20121025
  Transmission Date: 20130627
  Serious: Yes (Death, Other)
  Sender: FDA-Public Use
  Company Number: SE-ASTRAZENECA-2012SE78318

PATIENT
  Age: 71 Year
  Sex: Male

DRUGS (10)
  1. ESOMEPRAZOL [Suspect]
     Indication: GASTRIC ULCER
     Route: 048
     Dates: start: 20120309, end: 20120316
  2. DRUG NOT SHOWN 1 [Interacting]
     Indication: GASTRIC ULCER
     Route: 048
     Dates: start: 20120309, end: 20120316
  3. DRUG NOT SHOWN 2 [Suspect]
     Indication: GASTRIC ULCER
     Route: 048
     Dates: start: 20120309, end: 20120316
  4. ALFUZOSIN ACTAVIS [Concomitant]
  5. ATACAND [Concomitant]
  6. METHOTREXATE ORION [Concomitant]
  7. TAMIFLU [Concomitant]
  8. FINASTERID ARROW [Concomitant]
  9. FOLACIN [Concomitant]
  10. INDERAL [Concomitant]

REACTIONS (2)
  - Drug interaction [Fatal]
  - Arrhythmia [Fatal]
